FAERS Safety Report 9479279 (Version 1)
Quarter: 2013Q3

REPORT INFORMATION
  Report Type: Report from Study
  Country: US (occurrence: US)
  Receive Date: 20130827
  Receipt Date: 20130827
  Transmission Date: 20140515
  Serious: Yes (Other)
  Sender: FDA-Public Use
  Company Number: US-US-EMD SERONO, INC.-7233249

PATIENT
  Sex: Female

DRUGS (4)
  1. REBIF [Suspect]
     Indication: MULTIPLE SCLEROSIS
     Route: 058
     Dates: start: 20080806, end: 20110201
  2. REBIF [Suspect]
     Route: 058
     Dates: start: 20110811, end: 20120808
  3. REBIF [Suspect]
     Route: 058
     Dates: start: 20130613
  4. KEPPRA [Concomitant]
     Indication: CONVULSION

REACTIONS (4)
  - Grand mal convulsion [Unknown]
  - Convulsion [Unknown]
  - Teeth brittle [Unknown]
  - Injection site pain [Not Recovered/Not Resolved]
